FAERS Safety Report 9758804 (Version 1)
Quarter: 2013Q4

REPORT INFORMATION
  Report Type: Spontaneous
  Country: US (occurrence: None)
  Receive Date: 20131216
  Receipt Date: 20131216
  Transmission Date: 20140711
  Serious: Yes (Other)
  Sender: FDA-Public Use
  Company Number: 063068

PATIENT
  Sex: Female
  Weight: 53 kg

DRUGS (1)
  1. CIMZIA [Suspect]
     Indication: CROHN^S DISEASE
     Dosage: (),    (400 MG 1X/2 WEEKS, FOR WEEKS 0,2 AND WEEK 4), (400 MG 1X/4 WEEKS)

REACTIONS (2)
  - Crohn^s disease [None]
  - Headache [None]
